FAERS Safety Report 8841306 (Version 1)
Quarter: 2012Q4

REPORT INFORMATION
  Report Type: Report from Study
  Country: GB (occurrence: GB)
  Receive Date: 20121015
  Receipt Date: 20121015
  Transmission Date: 20130627
  Serious: Yes (Hospitalization)
  Sender: FDA-Public Use
  Company Number: GB-ASTRAZENECA-2012SE76641

PATIENT
  Sex: Male
  Weight: 70 kg

DRUGS (13)
  1. ZD6474 [Suspect]
     Indication: ADENOCARCINOMA PANCREAS
     Route: 048
     Dates: start: 20120704, end: 20120711
  2. ZD6474 [Suspect]
     Indication: ADENOCARCINOMA PANCREAS
     Route: 048
     Dates: start: 20120716, end: 20120808
  3. ZD6474 [Suspect]
     Indication: ADENOCARCINOMA PANCREAS
     Route: 048
     Dates: start: 20120810, end: 20120828
  4. ZD6474 [Suspect]
     Indication: ADENOCARCINOMA PANCREAS
     Route: 048
     Dates: start: 20120829, end: 20120921
  5. GEMCITABINE [Suspect]
     Indication: ADENOCARCINOMA PANCREAS
     Route: 042
     Dates: start: 20120704, end: 20120710
  6. GEMCITABINE [Suspect]
     Indication: ADENOCARCINOMA PANCREAS
     Route: 042
     Dates: start: 20120711, end: 20120717
  7. GEMCITABINE [Suspect]
     Indication: ADENOCARCINOMA PANCREAS
     Route: 042
     Dates: start: 20120725, end: 20120731
  8. ZOMORPH [Concomitant]
     Indication: PAIN
     Route: 048
     Dates: start: 20120510
  9. ORAMORPH [Concomitant]
     Indication: PAIN
     Route: 048
     Dates: start: 20120510
  10. METROCLOPRAMIDE [Concomitant]
     Indication: NAUSEA
     Route: 048
     Dates: start: 20120510
  11. CREON [Concomitant]
     Indication: ENZYME SUPPLEMENTATION
     Route: 048
     Dates: start: 20120715
  12. CYCLIZINE [Concomitant]
     Indication: NAUSEA
     Route: 048
     Dates: start: 20120704
  13. LOPERIMIDE [Concomitant]
     Indication: DIARRHOEA
     Route: 048
     Dates: start: 20120704

REACTIONS (2)
  - Pyrexia [Recovered/Resolved]
  - Fatigue [None]
